FAERS Safety Report 7345692-2 (Version None)
Quarter: 2011Q1

REPORT INFORMATION
  Report Type: 
  Country: None (occurrence: None)
  Receive Date: 20110310
  Receipt Date: 20110302
  Transmission Date: 20110831
  Serious: Yes (Other)
  Sender: FDA-Public Use
  Company Number: B0705109A

PATIENT
  Sex: Male

DRUGS (2)
  1. EFAVIRENZ [Concomitant]
     Indication: HIV INFECTION
     Dates: start: 20070805, end: 20071016
  2. COMBIVIR [Suspect]
     Indication: HIV INFECTION
     Route: 065
     Dates: start: 20070805, end: 20071016

REACTIONS (5)
  - NAUSEA [None]
  - ASTHENIA [None]
  - DIZZINESS [None]
  - ANAEMIA [None]
  - DYSPNOEA [None]
